FAERS Safety Report 12332319 (Version 1)
Quarter: 2016Q2

REPORT INFORMATION
  Report Type: Spontaneous
  Country: US (occurrence: US)
  Receive Date: 20160504
  Receipt Date: 20160504
  Transmission Date: 20160815
  Serious: No
  Sender: FDA-Public Use
  Company Number: US-ROCHE-1641381

PATIENT
  Sex: Female

DRUGS (11)
  1. ESBRIET [Suspect]
     Active Substance: PIRFENIDONE
     Indication: IDIOPATHIC PULMONARY FIBROSIS
     Route: 048
     Dates: start: 20150916
  2. TRAZODONE [Concomitant]
     Active Substance: TRAZODONE HYDROCHLORIDE
     Route: 048
  3. CYMBALTA [Concomitant]
     Active Substance: DULOXETINE HYDROCHLORIDE
     Route: 048
  4. NORCO [Concomitant]
     Active Substance: ACETAMINOPHEN\HYDROCODONE BITARTRATE
     Route: 048
  5. NEUROPAX [Concomitant]
     Route: 048
  6. NAPROXEN. [Concomitant]
     Active Substance: NAPROXEN
     Route: 048
  7. ABILIFY [Concomitant]
     Active Substance: ARIPIPRAZOLE
     Route: 048
  8. SEROQUEL [Concomitant]
     Active Substance: QUETIAPINE FUMARATE
  9. ROBAXIN [Concomitant]
     Active Substance: METHOCARBAMOL
     Route: 048
  10. AMBIEN [Concomitant]
     Active Substance: ZOLPIDEM TARTRATE
     Route: 048
  11. XANAX [Concomitant]
     Active Substance: ALPRAZOLAM
     Route: 048

REACTIONS (3)
  - Vomiting [Recovered/Resolved]
  - Throat irritation [Unknown]
  - Nausea [Recovered/Resolved]
